FAERS Safety Report 5295671-4 (Version None)
Quarter: 2007Q2

REPORT INFORMATION
  Report Type: 
  Country: None (occurrence: None)
  Receive Date: 20070410
  Receipt Date: 20070410
  Transmission Date: 20071010
  Serious: Yes (Death)
  Sender: FDA-Public Use
  Company Number: None

PATIENT
  Sex: Male

DRUGS (5)
  1. REVLIMID [Suspect]
     Indication: MULTIPLE MYELOMA
     Dosage: 25MG DAILY 21D/28D PO
     Route: 048
  2. DEXAMETHASONE 0.5MG TAB [Concomitant]
  3. PROCRIT [Concomitant]
  4. ZOMETA [Concomitant]
  5. ALLOPURINOL [Concomitant]

REACTIONS (5)
  - ASTHENIA [None]
  - DECREASED APPETITE [None]
  - MALIGNANT NEOPLASM PROGRESSION [None]
  - MULTIPLE MYELOMA [None]
  - WEIGHT DECREASED [None]
